FAERS Safety Report 4503494-6 (Version None)
Quarter: 2004Q4

REPORT INFORMATION
  Report Type: 
  Country: None (occurrence: None)
  Receive Date: 20041112
  Receipt Date: 20041101
  Transmission Date: 20050328
  Serious: Yes (Other)
  Sender: FDA-Public Use
  Company Number: 2004240416JP

PATIENT
  Age: 67 Year
  Sex: Male
  Weight: 64 kg

DRUGS (16)
  1. SOLU-MEDROL [Suspect]
     Indication: ASTHMA
     Dosage: 250 MG, PRN, IV; 125 MG, PRN; 40 MG, PRN
     Route: 042
     Dates: start: 20041017, end: 20041017
  2. SOLU-MEDROL [Suspect]
     Indication: ASTHMA
     Dosage: 250 MG, PRN, IV; 125 MG, PRN; 40 MG, PRN
     Route: 042
     Dates: start: 20041017, end: 20041020
  3. SOLU-MEDROL [Suspect]
     Indication: ASTHMA
     Dosage: 250 MG, PRN, IV; 125 MG, PRN; 40 MG, PRN
     Route: 042
     Dates: start: 20041021, end: 20041022
  4. SOLU-MEDROL [Suspect]
     Indication: ASTHMA
     Dosage: 250 MG, PRN, IV; 125 MG, PRN; 40 MG, PRN
     Route: 042
     Dates: start: 19940301
  5. SOLU-MEDROL [Suspect]
     Indication: ASTHMA
     Dosage: 250 MG, PRN, IV; 125 MG, PRN; 40 MG, PRN
     Route: 042
     Dates: start: 20041016
  6. FLUTICASONE PROPIONATE [Concomitant]
  7. AIROMIR (SALBUTAMOL SULFATE) [Concomitant]
  8. HARTMANN'S SOLUTION [Concomitant]
  9. BETAHISTINE MESILATE [Concomitant]
  10. NEOPHYLLIN [Concomitant]
  11. UNIPHYL [Concomitant]
  12. PRANULUKAST (PRANLUKAST) [Concomitant]
  13. CARBOCISTEINE [Concomitant]
  14. ZYRTEC [Concomitant]
  15. HOKUNALIN (TULOBUTEROL HYDROCHLORIDE) [Concomitant]
  16. SOLITA-T3 INJECTION [Concomitant]

REACTIONS (2)
  - CHILLS [None]
  - DYSKINESIA [None]
